FAERS Safety Report 15621970 (Version 1)
Quarter: 2018Q4

REPORT INFORMATION
  Report Type: Report from Study
  Country: SG (occurrence: SG)
  Receive Date: 20181115
  Receipt Date: 20181115
  Transmission Date: 20190205
  Serious: Yes (Other)
  Sender: FDA-Public Use
  Company Number: SG-PFIZER INC-2018326451

PATIENT
  Age: 39 Year
  Sex: Female
  Weight: 59.2 kg

DRUGS (3)
  1. LORLATINIB [Suspect]
     Active Substance: LORLATINIB
     Dosage: 50 MG, DAILY
     Route: 048
  2. LORLATINIB [Suspect]
     Active Substance: LORLATINIB
     Indication: NON-SMALL CELL LUNG CANCER METASTATIC
     Dosage: 100 MG, ONCE DAILY
     Route: 048
     Dates: start: 20170529
  3. LORLATINIB [Suspect]
     Active Substance: LORLATINIB
     Dosage: 100 MG, DAILY
     Route: 048
     Dates: start: 20180828

REACTIONS (5)
  - Anger [Recovering/Resolving]
  - Insomnia [Recovering/Resolving]
  - Mood altered [Recovered/Resolved]
  - Anxiety [Recovering/Resolving]
  - Nightmare [Recovering/Resolving]

NARRATIVE: CASE EVENT DATE: 201807
